FAERS Safety Report 21688564 (Version 19)
Quarter: 2025Q4

REPORT INFORMATION
  Report Type: Spontaneous
  Country: US (occurrence: US)
  Receive Date: 20221206
  Receipt Date: 20251203
  Transmission Date: 20260118
  Serious: Yes (Hospitalization)
  Sender: PFIZER
  Company Number: US-PFIZER INC-202201350184

PATIENT
  Age: 78 Year
  Sex: Male

DRUGS (2)
  1. CELONTIN [Suspect]
     Active Substance: METHSUXIMIDE
     Indication: Seizure
     Dosage: 1 CAPSULE TWICE A DAY
     Route: 048
  2. CELONTIN [Suspect]
     Active Substance: METHSUXIMIDE
     Dosage: TAKES 2 A DAY

REACTIONS (4)
  - COVID-19 [Unknown]
  - Arthritis [Unknown]
  - Illness [Unknown]
  - Blood pressure abnormal [Unknown]
